FAERS Safety Report 25732964 (Version 1)
Quarter: 2025Q3

REPORT INFORMATION
  Report Type: Spontaneous
  Country: CN (occurrence: CN)
  Receive Date: 20250828
  Receipt Date: 20250828
  Transmission Date: 20251021
  Serious: Yes (Death, Hospitalization, Other)
  Sender: BEIGENE
  Company Number: CN-ASTELLAS-2025-AER-039088

PATIENT

DRUGS (8)
  1. TISLELIZUMAB [Suspect]
     Active Substance: TISLELIZUMAB
     Indication: Transitional cell carcinoma metastatic
  2. TISLELIZUMAB [Suspect]
     Active Substance: TISLELIZUMAB
  3. TISLELIZUMAB [Suspect]
     Active Substance: TISLELIZUMAB
  4. TISLELIZUMAB [Suspect]
     Active Substance: TISLELIZUMAB
  5. PADCEV [Suspect]
     Active Substance: ENFORTUMAB VEDOTIN-EJFV
     Indication: Transitional cell carcinoma metastatic
  6. PADCEV [Suspect]
     Active Substance: ENFORTUMAB VEDOTIN-EJFV
  7. PADCEV [Suspect]
     Active Substance: ENFORTUMAB VEDOTIN-EJFV
  8. PADCEV [Suspect]
     Active Substance: ENFORTUMAB VEDOTIN-EJFV

REACTIONS (3)
  - Hyperglycaemia [Fatal]
  - Myelosuppression [Fatal]
  - Pancreatitis [Fatal]
